FAERS Safety Report 25249246 (Version 4)
Quarter: 2025Q3

REPORT INFORMATION
  Report Type: Spontaneous
  Country: US (occurrence: US)
  Receive Date: 20250429
  Receipt Date: 20250723
  Transmission Date: 20251020
  Serious: Yes (Other)
  Sender: GILEAD
  Company Number: US-GILEAD-2025-0711801

PATIENT
  Age: 42 Year
  Sex: Female

DRUGS (1)
  1. TRUVADA [Suspect]
     Active Substance: EMTRICITABINE\TENOFOVIR DISOPROXIL FUMARATE
     Indication: Product used for unknown indication
     Route: 048
     Dates: start: 20140601, end: 20161118

REACTIONS (4)
  - Chronic kidney disease [Unknown]
  - Renal failure [Unknown]
  - Multiple fractures [Recovered/Resolved]
  - Acute kidney injury [Not Recovered/Not Resolved]

NARRATIVE: CASE EVENT DATE: 20140719
